FAERS Safety Report 13786009 (Version 4)
Quarter: 2017Q3

REPORT INFORMATION
  Report Type: Report from Study
  Country: US (occurrence: US)
  Receive Date: 20170725
  Receipt Date: 20170815
  Transmission Date: 20171127
  Serious: Yes (Other)
  Sender: FDA-Public Use
  Company Number: PHEH2017US022847

PATIENT
  Sex: Male

DRUGS (1)
  1. GILENYA [Suspect]
     Active Substance: FINGOLIMOD HYDROCHLORIDE
     Indication: MULTIPLE SCLEROSIS
     Dosage: 0.5 MG, QD
     Route: 048
     Dates: start: 20140528

REACTIONS (11)
  - Stress [Unknown]
  - Pain [Unknown]
  - Cognitive disorder [Unknown]
  - Movement disorder [Unknown]
  - Fatigue [Unknown]
  - Multiple sclerosis relapse [Unknown]
  - Malaise [Unknown]
  - Memory impairment [Unknown]
  - Speech disorder [Unknown]
  - Drooling [Unknown]
  - Dyspnoea [Unknown]
